FAERS Safety Report 8496445-3 (Version None)
Quarter: 2012Q3

REPORT INFORMATION
  Report Type: 
  Country: None (occurrence: None)
  Receive Date: 20120709
  Receipt Date: 20120628
  Transmission Date: 20120928
  Serious: Yes (Hospitalization, Other)
  Sender: FDA-Public Use
  Company Number: US-BRISTOL-MYERS SQUIBB COMPANY-16722365

PATIENT
  Age: 82 Year
  Sex: Female
  Weight: 43 kg

DRUGS (5)
  1. ADDERALL 5 [Concomitant]
  2. ACETAMINOPHEN [Concomitant]
  3. COUMADIN [Suspect]
     Indication: CEREBROVASCULAR ACCIDENT
     Route: 048
     Dates: start: 20120201
  4. TRAMADOL HCL [Concomitant]
  5. ASPIRIN [Concomitant]

REACTIONS (11)
  - ANXIETY [None]
  - WEIGHT DECREASED [None]
  - MUSCULOSKELETAL PAIN [None]
  - DEMENTIA [None]
  - HEAD INJURY [None]
  - ASTHENIA [None]
  - DEPRESSION [None]
  - DIZZINESS [None]
  - NAUSEA [None]
  - WHITE BLOOD CELL COUNT DECREASED [None]
  - FALL [None]
